FAERS Safety Report 9892241 (Version 1)
Quarter: 2014Q1

REPORT INFORMATION
  Report Type: Spontaneous
  Country: US (occurrence: US)
  Receive Date: 20140212
  Receipt Date: 20140212
  Transmission Date: 20141002
  Serious: No
  Sender: FDA-Public Use
  Company Number: US-MALLINCKRODT-T201305134

PATIENT
  Age: 74 Year
  Sex: Male
  Weight: 74.83 kg

DRUGS (7)
  1. FENTANYL TRANSDERMAL SYSTEM [Suspect]
     Indication: PAIN
     Dosage: 75 UG/HR, 1 PATCH Q72H
     Route: 062
     Dates: start: 2011, end: 201310
  2. PERCOCET                           /00446701/ [Concomitant]
     Indication: BREAKTHROUGH PAIN
     Dosage: 5/325 MG, 6 TABS QD
     Route: 048
  3. GABAPENTIN [Concomitant]
     Indication: NEURALGIA
     Dosage: 300 MG, QID
     Route: 048
  4. CYMBALTA [Concomitant]
     Indication: DEPRESSION
     Dosage: 60 MG, QD
     Route: 048
  5. FLOMAX [Concomitant]
     Dosage: 0.4 MG, QD
     Route: 048
  6. TRAZODONE [Concomitant]
     Indication: INSOMNIA
     Dosage: 100 MG
     Route: 048
  7. SEROQUEL [Concomitant]
     Indication: DEPRESSION
     Dosage: 50 MG, QD
     Route: 048

REACTIONS (2)
  - Drug screen negative [Unknown]
  - Drug effect decreased [Not Recovered/Not Resolved]
